FAERS Safety Report 14207932 (Version 1)
Quarter: 2017Q4

REPORT INFORMATION
  Report Type: Spontaneous
  Country: US (occurrence: None)
  Receive Date: 20171114
  Receipt Date: 20171114
  Transmission Date: 20180321
  Serious: No
  Sender: FDA-Public Use
  Company Number: None

PATIENT
  Age: 48 Year
  Sex: Female

DRUGS (1)
  1. IMATINIB 400MG SUNPHARMA [Suspect]
     Active Substance: IMATINIB
     Indication: CHRONIC MYELOID LEUKAEMIA
     Route: 048
     Dates: start: 20170629

REACTIONS (3)
  - Back pain [None]
  - Cerebrospinal fluid leakage [None]
  - Headache [None]

NARRATIVE: CASE EVENT DATE: 20170924
